FAERS Safety Report 5242874-0 (Version None)
Quarter: 2007Q1

REPORT INFORMATION
  Report Type: 
  Country: None (occurrence: None)
  Receive Date: 20070221
  Receipt Date: 20070208
  Transmission Date: 20070707
  Serious: Yes (Other)
  Sender: FDA-Public Use
  Company Number: IT-ELI_LILLY_AND_COMPANY-IT200702002504

PATIENT
  Age: 53 Year
  Sex: Male

DRUGS (6)
  1. SOMATROPIN [Suspect]
     Indication: HYPOPITUITARISM
     Dosage: 0.4 MG, DAILY (1/D)
     Route: 058
     Dates: start: 20010112, end: 20061219
  2. CORTISONE ACETATE [Concomitant]
     Dosage: 25 MG, DAILY (1/D)
     Route: 048
  3. TESTIM [Concomitant]
     Dosage: 1 D/F, DAILY (1/D)
  4. METFORMIN HCL [Concomitant]
     Dosage: 1000 MG, 3/D
  5. KARVEA [Concomitant]
     Dosage: 150 MG, DAILY (1/D)
  6. LERCANIDIPINE [Concomitant]
     Dosage: 10 MG, DAILY (1/D)
     Dates: start: 20010101

REACTIONS (1)
  - MALIGNANT MELANOMA [None]
